FAERS Safety Report 16888036 (Version 1)
Quarter: 2019Q4

REPORT INFORMATION
  Report Type: Spontaneous
  Country: CO (occurrence: CO)
  Receive Date: 20191006
  Receipt Date: 20191006
  Transmission Date: 20200122
  Serious: Yes (Hospitalization)
  Sender: FDA-Public Use
  Company Number: CO-NOVOPROD-687199

PATIENT
  Weight: 2.5 kg

DRUGS (3)
  1. APIDRA [Concomitant]
     Active Substance: INSULIN GLULISINE
     Dosage: 18 UNITS BEFORE EACH MEAL
  2. TRESIBA [Suspect]
     Active Substance: INSULIN DEGLUDEC
     Indication: TYPE 1 DIABETES MELLITUS
     Dosage: UNK
     Route: 064
  3. APIDRA [Concomitant]
     Active Substance: INSULIN GLULISINE
     Indication: TYPE 1 DIABETES MELLITUS
     Dosage: 10 UNITS WITH EACH MEAL
     Route: 064

REACTIONS (3)
  - Neonatal respiratory distress [Unknown]
  - Premature baby [Unknown]
  - Foetal exposure during pregnancy [Unknown]
